FAERS Safety Report 20934492 (Version 1)
Quarter: 2022Q2

REPORT INFORMATION
  Report Type: Spontaneous
  Country: IE (occurrence: IE)
  Receive Date: 20220608
  Receipt Date: 20220608
  Transmission Date: 20220721
  Serious: Yes (Other)
  Sender: FDA-Public Use
  Company Number: IE-SCALL-2022-IE-000007

PATIENT
  Age: 70 Year
  Sex: Male

DRUGS (1)
  1. DUTASTERIDE\TAMSULOSIN HYDROCHLORIDE [Suspect]
     Active Substance: DUTASTERIDE\TAMSULOSIN HYDROCHLORIDE
     Indication: Benign prostatic hyperplasia
     Route: 048
     Dates: start: 202204

REACTIONS (7)
  - Palpitations [Recovered/Resolved]
  - Dizziness [Recovered/Resolved]
  - Male sexual dysfunction [Not Recovered/Not Resolved]
  - Dry mouth [Recovered/Resolved]
  - Dysarthria [Recovered/Resolved]
  - Middle insomnia [Recovered/Resolved]
  - Feeling drunk [Recovered/Resolved]

NARRATIVE: CASE EVENT DATE: 20220401
